FAERS Safety Report 20924098 (Version 3)
Quarter: 2022Q3

REPORT INFORMATION
  Report Type: Report from Study
  Country: US (occurrence: US)
  Receive Date: 20220607
  Receipt Date: 20220816
  Transmission Date: 20221027
  Serious: Yes (Hospitalization, Other)
  Sender: FDA-Public Use
  Company Number: US-NOVARTISPH-NVSC2022US127631

PATIENT
  Age: 0 Year
  Sex: Male
  Weight: 8.4 kg

DRUGS (2)
  1. TRAMETINIB [Suspect]
     Active Substance: TRAMETINIB
     Indication: BRAF gene mutation
     Dosage: 4.8 ML, QD (NJ/GJ-TUBE)
     Route: 065
     Dates: start: 20220520, end: 20220527
  2. TRAMETINIB [Suspect]
     Active Substance: TRAMETINIB
     Indication: Astrocytoma malignant
     Dosage: 0.18 MG, (GJ-TUBE)
     Route: 065
     Dates: start: 20220520

REACTIONS (8)
  - COVID-19 [Not Recovered/Not Resolved]
  - Oxygen saturation decreased [Unknown]
  - Stridor [Unknown]
  - Respiratory distress [Unknown]
  - Respiratory tract congestion [Unknown]
  - Cough [Unknown]
  - Hypernatraemia [Recovered/Resolved]
  - Blood sodium decreased [Unknown]

NARRATIVE: CASE EVENT DATE: 20220527
